FAERS Safety Report 4579847-7 (Version None)
Quarter: 2005Q1

REPORT INFORMATION
  Report Type: 
  Country: None (occurrence: None)
  Receive Date: 20050214
  Receipt Date: 20050202
  Transmission Date: 20050727
  Serious: Yes (Other)
  Sender: FDA-Public Use
  Company Number: US-JNJFOC-20040909107

PATIENT
  Sex: Male

DRUGS (7)
  1. TOPAMAX [Suspect]
     Indication: DRUG USE FOR UNKNOWN INDICATION
     Route: 049
  2. LAMICTAL [Concomitant]
     Route: 049
  3. XELODA [Concomitant]
     Route: 049
  4. CELEBREX [Concomitant]
     Route: 049
  5. TEMODAR [Concomitant]
     Route: 049
  6. THIOGUANINE [Concomitant]
     Route: 049
  7. PHENOBARBITAL [Concomitant]
     Route: 049

REACTIONS (3)
  - ANAPLASTIC ASTROCYTOMA [None]
  - CONVULSION [None]
  - RECURRENT CANCER [None]
